FAERS Safety Report 7954541-0 (Version None)
Quarter: 2011Q4

REPORT INFORMATION
  Report Type: 
  Country: None (occurrence: None)
  Receive Date: 20111202
  Receipt Date: 20111122
  Transmission Date: 20120403
  Serious: Yes (Hospitalization, Other)
  Sender: FDA-Public Use
  Company Number: PHHY2011JP85950

PATIENT
  Age: 74 Year
  Sex: Male

DRUGS (2)
  1. DIOVAN [Suspect]
     Indication: HYPERTENSION
     Dosage: 160 MG/DAY
     Dates: end: 20090601
  2. LOSARTAN POTASSIUM AND HYDROCHLOROTHIAZIDE [Suspect]
     Dosage: 1 DF/DAY (50 MG LOSA AND 12.5 MG HYDR)
     Dates: start: 20090601

REACTIONS (19)
  - BLOOD UREA INCREASED [None]
  - HYPONATRAEMIA [None]
  - DEHYDRATION [None]
  - DYSSTASIA [None]
  - HYPERTENSION [None]
  - THYROXINE FREE INCREASED [None]
  - DECREASED APPETITE [None]
  - BACK PAIN [None]
  - MUSCULAR WEAKNESS [None]
  - BLOOD THYROID STIMULATING HORMONE DECREASED [None]
  - LUMBAR SPINAL STENOSIS [None]
  - PAIN IN EXTREMITY [None]
  - RENAL FAILURE CHRONIC [None]
  - URINE SODIUM INCREASED [None]
  - RENAL TUBULAR DISORDER [None]
  - RENIN INCREASED [None]
  - RHABDOMYOLYSIS [None]
  - BLOOD CREATININE INCREASED [None]
  - BLOOD CORTISOL INCREASED [None]
